FAERS Safety Report 5803857-2 (Version None)
Quarter: 2008Q3

REPORT INFORMATION
  Report Type: 
  Country: None (occurrence: None)
  Receive Date: 20080708
  Receipt Date: 20080627
  Transmission Date: 20090109
  Serious: Yes (Hospitalization)
  Sender: FDA-Public Use
  Company Number: ES-PFIZER INC-2007097588

PATIENT
  Age: 65 Year
  Sex: Male

DRUGS (9)
  1. ZYVOXID [Suspect]
     Indication: SEPTIC SHOCK
     Dosage: DAILY DOSE:1.2GRAM
     Route: 042
     Dates: start: 20070912, end: 20070920
  2. PIPERACILLIN AND TAZOBACTAM [Concomitant]
     Indication: SEPTIC SHOCK
     Dosage: FREQ:8/1 GRAMS DAILY
     Route: 042
     Dates: start: 20070915, end: 20070925
  3. ATROVENT [Concomitant]
     Indication: CHRONIC OBSTRUCTIVE PULMONARY DISEASE
     Dosage: DAILY DOSE:1500MCG-FREQ:DAILY
     Route: 055
  4. ENOXAPARIN SODIUM [Concomitant]
     Indication: PROPHYLAXIS
     Dosage: DAILY DOSE:20MG-FREQ:DAILY
     Route: 058
     Dates: start: 20070915, end: 20070922
  5. LOSEC I.V. [Concomitant]
     Dosage: DAILY DOSE:40MG
     Route: 042
  6. MIDAZOLAM HCL [Concomitant]
     Indication: ANALGESIA
     Route: 042
     Dates: start: 20070918, end: 20070920
  7. ALBUTEROL [Concomitant]
     Indication: CHRONIC OBSTRUCTIVE PULMONARY DISEASE
     Dosage: DAILY DOSE:3ML-FREQ:DAILY
     Route: 055
     Dates: start: 20070915
  8. EPOPROSTENOL SODIUM [Concomitant]
     Indication: MULTI-ORGAN FAILURE
     Route: 042
     Dates: start: 20070915, end: 20070916
  9. FITOMENADION [Concomitant]
     Indication: HAEMORRHAGE
     Dosage: DAILY DOSE:10MG
     Route: 042
     Dates: start: 20070915, end: 20070918

REACTIONS (2)
  - HAEMOPTYSIS [None]
  - THROMBOCYTOPENIA [None]
